FAERS Safety Report 8553877-2 (Version None)
Quarter: 2012Q3

REPORT INFORMATION
  Report Type: 
  Country: None (occurrence: None)
  Receive Date: 20120731
  Receipt Date: 20120622
  Transmission Date: 20120928
  Serious: Yes (Disabling)
  Sender: FDA-Public Use
  Company Number: GB-009507513-1203GBR00081

PATIENT

DRUGS (2)
  1. JANUVIA [Suspect]
     Indication: DIABETES MELLITUS
     Dosage: 100 MG, QD
     Route: 048
     Dates: start: 20110101, end: 20110101
  2. METFORMIN HYDROCHLORIDE [Concomitant]

REACTIONS (2)
  - VASCULITIS [None]
  - RHEUMATOID ARTHRITIS [None]
